FAERS Safety Report 9491327 (Version 1)
Quarter: 2013Q3

REPORT INFORMATION
  Report Type: Spontaneous
  Country: ES (occurrence: ES)
  Receive Date: 20130830
  Receipt Date: 20130830
  Transmission Date: 20140515
  Serious: Yes (Death, Hospitalization, Other)
  Sender: FDA-Public Use
  Company Number: ES-PFIZER INC-2013247777

PATIENT
  Age: 79 Year
  Sex: Female

DRUGS (6)
  1. CELEBREX [Suspect]
     Indication: PAIN
     Dosage: 200 MG, 1X/DAY
     Route: 048
     Dates: end: 201307
  2. AMOXICILLIN [Suspect]
     Indication: TOOTH ABSCESS
     Dosage: 500 MG, 3X/DAY
     Route: 048
     Dates: start: 20130701, end: 20130708
  3. DICLOFENAC [Suspect]
     Indication: PAIN
     Dosage: 1 DF, 1X/DAY
     Route: 030
     Dates: start: 20130708, end: 20130709
  4. EFFERALGAN [Suspect]
     Indication: PAIN
     Dosage: 4 G, 1X/DAY
     Route: 048
     Dates: end: 201307
  5. NOLOTIL /SPA/ [Suspect]
     Indication: PAIN
     Dosage: 575 MG, 4X/DAY
     Route: 048
     Dates: start: 20130701, end: 20130709
  6. VOLTAREN EMULGEL [Concomitant]
     Indication: PAIN
     Dosage: UNK
     Route: 061
     Dates: end: 201307

REACTIONS (4)
  - Agranulocytosis [Fatal]
  - Septic shock [Fatal]
  - Parotitis [Fatal]
  - Anuria [Unknown]
